FAERS Safety Report 15371976 (Version 1)
Quarter: 2018Q3

REPORT INFORMATION
  Report Type: Spontaneous
  Country: US (occurrence: US)
  Receive Date: 20180911
  Receipt Date: 20180911
  Transmission Date: 20181010
  Serious: No
  Sender: FDA-Public Use
  Company Number: US-TEVA-2018-US-952456

PATIENT
  Age: 88 Year
  Sex: Female

DRUGS (1)
  1. ALENDTAB?A [Suspect]
     Active Substance: ALENDRONIC ACID
     Indication: OSTEOPOROSIS POSTMENOPAUSAL
     Dosage: FORM STRENGTH: 70 UNIT NOT REPORTED.
     Route: 065
     Dates: start: 2016

REACTIONS (2)
  - Drug dose omission [Unknown]
  - Muscle spasms [Unknown]
